FAERS Safety Report 6115363-9 (Version None)
Quarter: 2009Q1

REPORT INFORMATION
  Report Type: 
  Country: None (occurrence: None)
  Receive Date: 20090313
  Receipt Date: 20090305
  Transmission Date: 20090719
  Serious: Yes (Hospitalization)
  Sender: FDA-Public Use
  Company Number: US-ABBOTT-09P-163-0557478-00

PATIENT
  Sex: Female
  Weight: 84.444 kg

DRUGS (12)
  1. HUMIRA [Suspect]
     Indication: RHEUMATOID ARTHRITIS
     Route: 058
     Dates: start: 20081007, end: 20090127
  2. ASPIRIN [Concomitant]
     Indication: CARDIOVASCULAR EVENT PROPHYLAXIS
     Dates: start: 20080501
  3. CYMBALTA [Concomitant]
     Indication: DEPRESSION
     Dates: start: 20060101
  4. RESTORIL [Concomitant]
     Indication: INSOMNIA
     Dates: start: 20060101
  5. TRAMADOL HCL [Concomitant]
     Indication: ARTHRALGIA
     Dates: start: 20070701
  6. MULTIPLE VITAMINS [Concomitant]
     Indication: VITAMIN SUPPLEMENTATION
     Dates: start: 20080501
  7. ISONIAZID [Concomitant]
     Indication: ANTIBIOTIC PROPHYLAXIS
     Dates: start: 20081006
  8. VITAMIN B6 [Concomitant]
     Indication: VITAMIN SUPPLEMENTATION
     Dates: start: 20081006
  9. LYRICA [Concomitant]
     Indication: BURNING SENSATION
     Dates: start: 20081008
  10. MOBIC [Concomitant]
     Indication: ARTHRALGIA
     Dates: start: 20060101
  11. FLU VACCINE [Concomitant]
     Indication: INFLUENZA IMMUNISATION
     Dates: start: 20081024, end: 20081024
  12. CIPROFLOXACIN HCL [Concomitant]
     Indication: CELLULITIS
     Dates: start: 20081230

REACTIONS (1)
  - PNEUMONIA [None]
